FAERS Safety Report 8121809-7 (Version None)
Quarter: 2012Q1

REPORT INFORMATION
  Report Type: 
  Country: None (occurrence: None)
  Receive Date: 20120208
  Receipt Date: 20120131
  Transmission Date: 20120608
  Serious: Yes (Other)
  Sender: FDA-Public Use
  Company Number: CA-PURDUE-USA-2012-0081385

PATIENT
  Sex: Female
  Weight: 75.7 kg

DRUGS (2)
  1. OXYCODONE HCL [Suspect]
     Indication: DRUG LEVEL
     Dosage: 40 MG, ONCE
     Route: 048
     Dates: start: 20120119, end: 20120119
  2. ONU PLACEBO ORAL SOLUTION [Suspect]
     Indication: DRUG LEVEL
     Dosage: 40 MG, ONCE
     Route: 048
     Dates: start: 20120120, end: 20120120

REACTIONS (1)
  - VENTRICULAR TACHYCARDIA [None]
